FAERS Safety Report 26012311 (Version 2)
Quarter: 2025Q4

REPORT INFORMATION
  Report Type: Spontaneous
  Country: US (occurrence: US)
  Receive Date: 20251107
  Receipt Date: 20251127
  Transmission Date: 20260117
  Serious: No
  Sender: BridgeBio Pharma
  Company Number: US-BRIDGEBIO-25US002066

PATIENT

DRUGS (1)
  1. ATTRUBY [Suspect]
     Active Substance: ACORAMIDIS HYDROCHLORIDE
     Indication: Product used for unknown indication
     Dosage: UNK
     Route: 065

REACTIONS (3)
  - Blood creatine increased [Unknown]
  - Vomiting [Unknown]
  - Gastrointestinal disorder [Unknown]
